FAERS Safety Report 6727734-8 (Version None)
Quarter: 2010Q2

REPORT INFORMATION
  Report Type: 
  Country: None (occurrence: None)
  Receive Date: 20100517
  Receipt Date: 20100503
  Transmission Date: 20101027
  Serious: Yes (Other)
  Sender: FDA-Public Use
  Company Number: IT-ROCHE-701413

PATIENT
  Age: 34 Year
  Sex: Female

DRUGS (28)
  1. PEGINTERFERON ALFA-2A [Suspect]
     Dosage: TWO CYCLES: JUL 2006 AND DECEMBER 2006)
     Route: 065
     Dates: start: 20060701
  2. SAQUINAVIR [Suspect]
     Indication: HIV INFECTION
     Route: 065
     Dates: start: 19980901, end: 20001201
  3. RIBAVIRIN [Suspect]
     Dosage: TWO CYCLES: JUL 2006 AND DECEMBER 2006)
     Route: 065
     Dates: start: 20060701
  4. INDINIVIR SULFATE [Suspect]
     Indication: HIV INFECTION
     Route: 065
     Dates: start: 19980601, end: 19980901
  5. FOSAMPRENAVIR [Suspect]
     Indication: HIV INFECTION
     Route: 065
     Dates: start: 20050901, end: 20080101
  6. EFAVIRENZ [Suspect]
     Indication: HIV INFECTION
     Route: 065
  7. DIDANOSINE [Suspect]
     Indication: HIV INFECTION
     Route: 065
     Dates: start: 19970301, end: 19980601
  8. DIDANOSINE [Suspect]
     Route: 065
  9. DIDANOSINE [Suspect]
     Route: 065
     Dates: start: 20021001
  10. LAMIVUDINE [Suspect]
     Indication: HIV INFECTION
     Route: 065
     Dates: start: 19980601, end: 20001201
  11. LAMIVUDINE [Suspect]
     Route: 065
  12. LAMIVUDINE [Suspect]
     Route: 065
     Dates: start: 20050901, end: 20080101
  13. D4T [Suspect]
     Indication: HIV INFECTION
     Route: 065
  14. D4T [Suspect]
     Route: 065
  15. D4T [Suspect]
     Route: 065
     Dates: start: 20021001
  16. ABACAVIR [Suspect]
     Indication: HIV INFECTION
     Route: 065
     Dates: start: 20021001
  17. ABACAVIR [Suspect]
     Route: 065
     Dates: start: 20050901, end: 20080101
  18. NEVIRAPINE [Suspect]
     Indication: HIV INFECTION
     Route: 065
  19. RITONAVIR [Suspect]
     Indication: HIV INFECTION
     Route: 065
     Dates: start: 20050901, end: 20080101
  20. RITONAVIR [Suspect]
     Route: 065
     Dates: start: 20080301, end: 20080801
  21. DARUNAVIR [Suspect]
     Indication: HIV INFECTION
     Route: 065
     Dates: start: 20080301, end: 20080801
  22. RALTEGRAVIR [Concomitant]
     Indication: HIV INFECTION
     Dates: start: 20081001
  23. TENOFOVIR [Concomitant]
     Indication: HIV INFECTION
     Dates: start: 20080301, end: 20080801
  24. TENOFOVIR [Concomitant]
     Dates: start: 20081001
  25. EMTRICITABINE [Concomitant]
     Indication: HIV INFECTION
     Dates: start: 20080301, end: 20080801
  26. EMTRICITABINE [Concomitant]
     Dates: start: 20081001
  27. ZIDOVUDINE [Concomitant]
     Indication: HIV INFECTION
     Dates: start: 19970301, end: 19980601
  28. ZIDOVUDINE [Concomitant]
     Dates: start: 19980601, end: 20001201

REACTIONS (8)
  - ALANINE AMINOTRANSFERASE INCREASED [None]
  - ASPARTATE AMINOTRANSFERASE INCREASED [None]
  - ASTHENIA [None]
  - CHRONIC HEPATITIS [None]
  - DECREASED APPETITE [None]
  - HEPATOMEGALY [None]
  - NEUROLOGICAL SYMPTOM [None]
  - RASH [None]
